FAERS Safety Report 5693000-5 (Version None)
Quarter: 2008Q2

REPORT INFORMATION
  Report Type: 
  Country: None (occurrence: None)
  Receive Date: 20080402
  Receipt Date: 20080402
  Transmission Date: 20081010
  Serious: No
  Sender: FDA-Public Use
  Company Number: None

PATIENT
  Sex: Male
  Weight: 78.4723 kg

DRUGS (2)
  1. METOPROLOL SUCCINATE EXTENDED RELEASE [Suspect]
     Indication: MYOCARDIAL INFARCTION
     Dosage: 25MG QD PO 5MAR-}1/2TAB-}8MAR
     Route: 048
     Dates: start: 20080305, end: 20080308
  2. METOPROLOL SUCCINATE EXTENDED RELEASE [Suspect]
     Indication: MYOCARDIAL INFARCTION
     Dosage: 25MG QD PO 5MAR-}1/2TAB-}8MAR
     Route: 048
     Dates: start: 20080125

REACTIONS (1)
  - DYSGEUSIA [None]
